FAERS Safety Report 9346826 (Version 2)
Quarter: 2013Q3

REPORT INFORMATION
  Report Type: Spontaneous
  Country: FR (occurrence: FR)
  Receive Date: 20130613
  Receipt Date: 20130828
  Transmission Date: 20140515
  Serious: Yes (Death, Hospitalization)
  Sender: FDA-Public Use
  Company Number: FR-TEVA-411896ISR

PATIENT
  Age: 92 Year
  Sex: Male

DRUGS (2)
  1. FUROSEMIDE TEVA 40 MG [Suspect]
     Indication: DIURETIC THERAPY
     Dates: start: 201305
  2. ANTIVITAMINS K [Concomitant]

REACTIONS (2)
  - Cardiac failure [Fatal]
  - Confusional state [Unknown]
